FAERS Safety Report 10042479 (Version 1)
Quarter: 2014Q1

REPORT INFORMATION
  Report Type: Spontaneous
  Country: US (occurrence: US)
  Receive Date: 20140327
  Receipt Date: 20140327
  Transmission Date: 20141002
  Serious: Yes (Other)
  Sender: FDA-Public Use
  Company Number: CHPA2014US004399

PATIENT
  Age: 78 Year
  Sex: Male

DRUGS (1)
  1. EX-LAX REG STR CHOCOLATED LAX PCS SEN [Suspect]
     Indication: CONSTIPATION
     Dosage: UNK
     Route: 048
     Dates: start: 201402

REACTIONS (1)
  - Drug dependence [Unknown]
